FAERS Safety Report 24185180 (Version 1)
Quarter: 2024Q3

REPORT INFORMATION
  Report Type: Spontaneous
  Country: US (occurrence: US)
  Receive Date: 20240807
  Receipt Date: 20240807
  Transmission Date: 20241017
  Serious: No
  Sender: GLENMARK
  Company Number: US-GLENMARK PHARMACEUTICALS-2024GMK090590

PATIENT

DRUGS (1)
  1. RYALTRIS [Suspect]
     Active Substance: MOMETASONE FUROATE MONOHYDRATE\OLOPATADINE HYDROCHLORIDE
     Indication: Chronic sinusitis
     Dosage: BID (2 SPRAYS EACH NOSTRIL TIMES 2 A DAY)
     Route: 045
     Dates: start: 20240404

REACTIONS (2)
  - Drug effective for unapproved indication [Unknown]
  - Product packaging quantity issue [Unknown]
